FAERS Safety Report 4412763-X (Version None)
Quarter: 2004Q3

REPORT INFORMATION
  Report Type: 
  Country: None (occurrence: None)
  Receive Date: 20040802
  Receipt Date: 19970904
  Transmission Date: 20050211
  Serious: Yes (Hospitalization, Other)
  Sender: FDA-Public Use
  Company Number: USA/97/02459/LAS

PATIENT
  Age: 78 Year
  Sex: Male

DRUGS (4)
  1. LAMISIL [Suspect]
     Indication: NAIL TINEA
     Route: 048
     Dates: start: 19970809, end: 19970819
  2. DIOVAN [Suspect]
     Dates: start: 19970717, end: 19970819
  3. CLARITIN [Concomitant]
  4. ASPIRIN [Concomitant]

REACTIONS (10)
  - BAND NEUTROPHIL PERCENTAGE INCREASED [None]
  - BIOPSY BONE MARROW ABNORMAL [None]
  - CHILLS [None]
  - GRANULOCYTES MATURATION ARREST [None]
  - LYMPHOCYTE PERCENTAGE INCREASED [None]
  - NEUTROPENIA [None]
  - PNEUMONIA [None]
  - PNEUMONITIS [None]
  - PYREXIA [None]
  - WHITE BLOOD CELL COUNT DECREASED [None]
